FAERS Safety Report 6834630-4 (Version None)
Quarter: 2010Q3

REPORT INFORMATION
  Report Type: 
  Country: None (occurrence: None)
  Receive Date: 20100712
  Receipt Date: 20070417
  Transmission Date: 20110219
  Serious: No
  Sender: FDA-Public Use
  Company Number: US-PFIZER INC-2007031214

PATIENT
  Sex: Female

DRUGS (6)
  1. CHANTIX [Suspect]
     Indication: SMOKING CESSATION THERAPY
     Dates: start: 20070301
  2. TAMOXIFEN [Concomitant]
  3. ACETYLSALICYLIC ACID [Concomitant]
  4. THYROID TAB [Concomitant]
  5. ZOLOFT [Concomitant]
  6. ISRADIPINE [Concomitant]

REACTIONS (1)
  - NAUSEA [None]
